FAERS Safety Report 13496253 (Version 4)
Quarter: 2017Q2

REPORT INFORMATION
  Report Type: Spontaneous
  Country: BR (occurrence: BR)
  Receive Date: 20170428
  Receipt Date: 20170530
  Transmission Date: 20170830
  Serious: Yes (Other)
  Sender: FDA-Public Use
  Company Number: BR-SA-2017SA064956

PATIENT
  Age: 30 Year
  Sex: Female
  Weight: 73 kg

DRUGS (9)
  1. LANTUS [Suspect]
     Active Substance: INSULIN GLARGINE
     Indication: BLOOD GLUCOSE FLUCTUATION
     Route: 051
     Dates: start: 2017
  2. NPH INSULIN [Suspect]
     Active Substance: INSULIN BEEF
     Indication: BLOOD GLUCOSE FLUCTUATION
     Route: 065
  3. DIENOGEST [Concomitant]
     Active Substance: DIENOGEST
     Indication: CONTRACEPTION
     Dosage: 2MG
     Route: 048
     Dates: start: 2016
  4. LEVOTHYROXINE. [Concomitant]
     Active Substance: LEVOTHYROXINE
     Indication: THYROID DISORDER
     Dosage: 50MCG
     Route: 048
     Dates: start: 2007
  5. LANTUS [Suspect]
     Active Substance: INSULIN GLARGINE
     Indication: BLOOD GLUCOSE FLUCTUATION
     Dosage: 40 IU AT 7 AM AND 26 IU AT 7 PM
     Route: 051
     Dates: start: 201611, end: 201701
  6. LANTUS [Suspect]
     Active Substance: INSULIN GLARGINE
     Indication: BLOOD GLUCOSE FLUCTUATION
     Route: 051
     Dates: start: 2017
  7. LANTUS [Suspect]
     Active Substance: INSULIN GLARGINE
     Indication: BLOOD GLUCOSE FLUCTUATION
     Route: 051
     Dates: start: 2002
  8. CLIKSTAR [Suspect]
     Active Substance: CLIKSTAR
     Indication: BLOOD GLUCOSE FLUCTUATION
     Dates: start: 2016
  9. HUMALOG [Concomitant]
     Active Substance: INSULIN LISPRO
     Indication: DIABETES MELLITUS
     Dosage: ACCORDING TO CARBOHYDRATE COUNTING
     Dates: start: 2012

REACTIONS (6)
  - Hypothyroidism [Unknown]
  - Product use issue [Unknown]
  - Renal impairment [Unknown]
  - Glycosylated haemoglobin increased [Unknown]
  - Off label use [Unknown]
  - Blood glucose increased [Unknown]

NARRATIVE: CASE EVENT DATE: 2007
